FAERS Safety Report 21466321 (Version 1)
Quarter: 2022Q4

REPORT INFORMATION
  Report Type: Spontaneous
  Country: US (occurrence: US)
  Receive Date: 20221017
  Receipt Date: 20221017
  Transmission Date: 20230112
  Serious: Yes (Hospitalization, Other)
  Sender: FDA-Public Use
  Company Number: US-SLATE RUN PHARMACEUTICALS-22US001364

PATIENT

DRUGS (10)
  1. VANCOMYCIN HYDROCHLORIDE [Suspect]
     Active Substance: VANCOMYCIN HYDROCHLORIDE
     Indication: Pneumonia bacterial
     Dosage: UNK
  2. METOPROLOL SUCCINATE [Suspect]
     Active Substance: METOPROLOL SUCCINATE
     Indication: Cardioversion
  3. OXYGEN [Concomitant]
     Active Substance: OXYGEN
     Indication: Respiratory distress
  4. REMDESIVIR [Concomitant]
     Active Substance: REMDESIVIR
     Indication: Respiratory distress
     Dosage: 100 MILLIGRAM, QD
  5. REMDESIVIR [Concomitant]
     Active Substance: REMDESIVIR
     Dosage: 200 MILLIGRAM, QD
  6. DEXAMETHASONE [Concomitant]
     Active Substance: DEXAMETHASONE
     Indication: Respiratory distress
     Dosage: 6 MILLIGRAM, QD
  7. NOREPINEPHRINE [Concomitant]
     Active Substance: NOREPINEPHRINE
     Indication: Haemodynamic instability
  8. EPOPROSTENOL [Concomitant]
     Active Substance: EPOPROSTENOL
     Indication: Haemodynamic instability
  9. VASOPRESSIN [Concomitant]
     Active Substance: VASOPRESSIN
     Indication: Haemodynamic instability
  10. HEPARIN [Concomitant]
     Active Substance: HEPARIN SODIUM
     Indication: Anticoagulant therapy
     Route: 042

REACTIONS (7)
  - Respiratory failure [Recovered/Resolved]
  - Fungaemia [Recovered/Resolved]
  - Cholecystitis acute [Recovered/Resolved]
  - Upper gastrointestinal haemorrhage [Recovered/Resolved]
  - Atrial fibrillation [Recovered/Resolved]
  - Lung opacity [Unknown]
  - Maternal exposure during pregnancy [Recovered/Resolved]
